FAERS Safety Report 21502883 (Version 1)
Quarter: 2022Q4

REPORT INFORMATION
  Report Type: Spontaneous
  Country: US (occurrence: US)
  Receive Date: 20221025
  Receipt Date: 20221025
  Transmission Date: 20230112
  Serious: Yes (Other)
  Sender: FDA-Public Use
  Company Number: US-Fresenius Medical Care Renal Therapies Group-FMC-2210-001703

PATIENT
  Age: 67 Year
  Sex: Male
  Weight: 116 kg

DRUGS (4)
  1. DELFLEX WITH DEXTROSE 1.5% LOW MAGNESIUM LOW CALCIUM [Suspect]
     Active Substance: CALCIUM CHLORIDE\DEXTROSE\MAGNESIUM CHLORIDE\SODIUM CHLORIDE\SODIUM LACTATE
     Indication: End stage renal disease
     Dosage: EXCHANGES = 5, FILL VOLUME = 3000 ML, DWELL TIME = 1.5 HOURS, LAST FILL = 1000 ML (ICODEXTRIN-ALL DA
     Route: 033
  2. DELFLEX WITH DEXTROSE 2.5% LOW MAGNESIUM LOW CALCIUM [Suspect]
     Active Substance: CALCIUM CHLORIDE\DEXTROSE\MAGNESIUM CHLORIDE\SODIUM CHLORIDE\SODIUM LACTATE
     Indication: End stage renal disease
     Dosage: EXCHANGES = 5, FILL VOLUME = 3000 ML, DWELL TIME = 1.5 HOURS, LAST FILL = 1000 ML (ICODEXTRIN-ALL DA
     Route: 033
  3. DELFLEX WITH DEXTROSE 4.25% LOW MAGNESIUM LOW CALCIUM [Suspect]
     Active Substance: CALCIUM CHLORIDE\DEXTROSE\MAGNESIUM CHLORIDE\SODIUM CHLORIDE\SODIUM LACTATE
     Indication: End stage renal disease
     Dosage: EXCHANGES = 5, FILL VOLUME = 3000 ML, DWELL TIME = 1.5 HOURS, LAST FILL = 1000 ML (ICODEXTRIN-ALL DA
     Route: 033
  4. ICODEXTRIN [Suspect]
     Active Substance: ICODEXTRIN

REACTIONS (1)
  - Peritonitis bacterial [Recovering/Resolving]
